FAERS Safety Report 16674842 (Version 2)
Quarter: 2019Q3

REPORT INFORMATION
  Report Type: Spontaneous
  Country: US (occurrence: US)
  Receive Date: 20190806
  Receipt Date: 20190920
  Transmission Date: 20191004
  Serious: No
  Sender: FDA-Public Use
  Company Number: US-SA-2019SA204738

PATIENT
  Age: 41 Year
  Sex: Female

DRUGS (1)
  1. KEVZARA [Suspect]
     Active Substance: SARILUMAB
     Indication: PRODUCT USED FOR UNKNOWN INDICATION
     Dosage: 200 MG, QOW
     Route: 058
     Dates: start: 201905

REACTIONS (4)
  - Ear infection [Unknown]
  - Condition aggravated [Unknown]
  - Sinusitis [Unknown]
  - Infection [Recovering/Resolving]

NARRATIVE: CASE EVENT DATE: 2019
